FAERS Safety Report 6573560-2 (Version None)
Quarter: 2010Q1

REPORT INFORMATION
  Report Type: 
  Country: None (occurrence: None)
  Receive Date: 20100208
  Receipt Date: 20100126
  Transmission Date: 20100710
  Serious: Yes (Hospitalization)
  Sender: FDA-Public Use
  Company Number: CA-ROCHE-675785

PATIENT
  Sex: Male
  Weight: 101.5 kg

DRUGS (13)
  1. TOCILIZUMAB [Suspect]
     Indication: RHEUMATOID ARTHRITIS
     Dosage: FORM: INFUSION, LAST DOSE BEFORE SAE ON 10 DEC 2009
     Route: 042
     Dates: start: 20090401
  2. METHOTREXATE [Concomitant]
     Dates: start: 20080601
  3. FOLIC ACID [Concomitant]
     Dates: start: 20080601
  4. PREDNISONE [Concomitant]
     Dates: start: 20080601
  5. IBUPROFEN [Concomitant]
     Dates: start: 20080601
  6. COMBIGAN [Concomitant]
     Route: 047
  7. XALATAN [Concomitant]
     Route: 047
  8. VITALUX [Concomitant]
     Dates: start: 20091201
  9. COVERSYL [Concomitant]
     Dates: start: 20090526
  10. TRUSOPT EYE DROPS [Concomitant]
     Route: 047
     Dates: start: 20090609
  11. DANDELION [Concomitant]
     Dates: start: 20091108
  12. NORVASC [Concomitant]
     Dates: start: 20091218
  13. ASPIRIN [Concomitant]
     Dates: start: 20091218

REACTIONS (3)
  - CHEST PAIN [None]
  - CHOLECYSTITIS [None]
  - CHOLELITHIASIS [None]
